FAERS Safety Report 9046913 (Version 1)
Quarter: 2013Q1

REPORT INFORMATION
  Report Type: Spontaneous
  Country: US (occurrence: None)
  Receive Date: 20130129
  Receipt Date: 20130129
  Transmission Date: 20140127
  Serious: Yes (Other)
  Sender: FDA-Public Use
  Company Number: None

PATIENT
  Age: 59 Year
  Sex: Male
  Weight: 88.45 kg

DRUGS (1)
  1. CYMBALTA 30 MG CAPLETS CYMBALTA [Suspect]
     Indication: NEURALGIA
     Route: 048
     Dates: start: 20130112, end: 20130113

REACTIONS (4)
  - Narcolepsy [None]
  - Vision blurred [None]
  - Muscle contractions involuntary [None]
  - Impaired driving ability [None]
